FAERS Safety Report 22112308 (Version 3)
Quarter: 2023Q2

REPORT INFORMATION
  Report Type: Spontaneous
  Country: US (occurrence: US)
  Receive Date: 20230318
  Receipt Date: 20230410
  Transmission Date: 20230722
  Serious: Yes (Other)
  Sender: FDA-Public Use
  Company Number: US-MLMSERVICE-20230302-4138052-1

PATIENT
  Age: 3 Year
  Sex: Female
  Weight: 15 kg

DRUGS (9)
  1. CARBOPLATIN [Suspect]
     Active Substance: CARBOPLATIN
     Indication: Ganglioneuroma
     Dosage: 750 MILLIGRAM/SQ. METER, CYCLICAL
     Route: 065
     Dates: start: 20110728, end: 2011
  2. CARBOPLATIN [Suspect]
     Active Substance: CARBOPLATIN
     Indication: Syringomyelia
     Dosage: 750 MILLIGRAM/SQ. METER, CYCLICAL
     Route: 065
     Dates: start: 20110919, end: 2011
  3. CARBOPLATIN [Suspect]
     Active Substance: CARBOPLATIN
     Indication: Disease progression
     Dosage: 750 MILLIGRAM/SQ. METER, CYCLICAL
     Route: 065
     Dates: start: 20111117
  4. IFOSFAMIDE [Suspect]
     Active Substance: IFOSFAMIDE
     Indication: Ganglioneuroma
     Dosage: 9000 MILLIGRAM/SQ. METER, CYCLICAL
     Route: 065
     Dates: start: 20110728, end: 2011
  5. IFOSFAMIDE [Suspect]
     Active Substance: IFOSFAMIDE
     Indication: Syringomyelia
     Dosage: 9000 MILLIGRAM/SQ. METER, CYCLICAL
     Route: 065
     Dates: start: 20110919, end: 2011
  6. IFOSFAMIDE [Suspect]
     Active Substance: IFOSFAMIDE
     Indication: Disease progression
     Dosage: 9000 MILLIGRAM/SQ. METER, CYCLICAL
     Route: 065
     Dates: start: 20111117
  7. TOPOTECAN [Suspect]
     Active Substance: TOPOTECAN HYDROCHLORIDE
     Indication: Disease progression
     Dosage: 1.5 MILLIGRAM/SQ. METER, CYCLICAL
     Route: 065
     Dates: start: 20110919, end: 2011
  8. TOPOTECAN [Suspect]
     Active Substance: TOPOTECAN HYDROCHLORIDE
     Indication: Ganglioneuroma
     Dosage: 1.5 MILLIGRAM/SQ. METER, CYCLICAL
     Route: 065
     Dates: start: 20110728, end: 2011
  9. TOPOTECAN [Suspect]
     Active Substance: TOPOTECAN HYDROCHLORIDE
     Indication: Syringomyelia
     Dosage: 1.5 MILLIGRAM/SQ. METER, CYCLICAL
     Route: 065
     Dates: start: 20111117

REACTIONS (8)
  - Haematotoxicity [Unknown]
  - Mucosal inflammation [Recovered/Resolved]
  - Febrile neutropenia [Recovered/Resolved]
  - Pancytopenia [Recovered/Resolved]
  - Cellulitis [Recovered/Resolved]
  - Anal infection [Recovered/Resolved]
  - Infection [Unknown]
  - Drug ineffective [Unknown]

NARRATIVE: CASE EVENT DATE: 20110811
